FAERS Safety Report 19482386 (Version 1)
Quarter: 2021Q3

REPORT INFORMATION
  Report Type: Spontaneous
  Country: US (occurrence: US)
  Receive Date: 20210701
  Receipt Date: 20210701
  Transmission Date: 20211014
  Serious: No
  Sender: FDA-Public Use
  Company Number: US-SA-2021SA214835

PATIENT
  Sex: Female
  Weight: 181.4 kg

DRUGS (2)
  1. DUPIXENT [Suspect]
     Active Substance: DUPILUMAB
     Indication: ASTHMA
     Dosage: 200 MG
     Dates: start: 202103
  2. FASENRA [Concomitant]
     Active Substance: BENRALIZUMAB

REACTIONS (1)
  - Eosinophil count increased [Unknown]

NARRATIVE: CASE EVENT DATE: 2021
